FAERS Safety Report 8768720 (Version 1)
Quarter: 2012Q4

REPORT INFORMATION
  Report Type: 
  Country: DE (occurrence: DE)
  Receive Date: 20120906
  Receipt Date: 20120906
  Transmission Date: 20130627
  Serious: Yes (Other)
  Sender: FDA-Public Use
  Company Number: DE-UCBSA-064848

PATIENT
  Sex: Female

DRUGS (1)
  1. CIMZIA [Suspect]
     Indication: RHEUMATOID ARTHRITIS

REACTIONS (7)
  - Myasthenia gravis [Unknown]
  - Central nervous system lesion [Unknown]
  - Eyelid ptosis [Unknown]
  - Palpitations [Unknown]
  - Asthma [Unknown]
  - Fatigue [Unknown]
  - Hypertension [Unknown]
